FAERS Safety Report 6680470-9 (Version None)
Quarter: 2010Q2

REPORT INFORMATION
  Report Type: 
  Country: None (occurrence: None)
  Receive Date: 20100414
  Receipt Date: 20100407
  Transmission Date: 20101027
  Serious: Yes (Hospitalization)
  Sender: FDA-Public Use
  Company Number: US-BIOGENIDEC-2010BI011737

PATIENT
  Age: 59 Year
  Sex: Female

DRUGS (1)
  1. AVONEX [Suspect]
     Indication: MULTIPLE SCLEROSIS
     Route: 030
     Dates: start: 19970508

REACTIONS (9)
  - ABASIA [None]
  - APHONIA [None]
  - CARPAL TUNNEL SYNDROME [None]
  - FALL [None]
  - LIVER DISORDER [None]
  - MOBILITY DECREASED [None]
  - PARAESTHESIA [None]
  - SPEECH DISORDER [None]
  - VISUAL IMPAIRMENT [None]
